FAERS Safety Report 8255595-7 (Version None)
Quarter: 2012Q2

REPORT INFORMATION
  Report Type: 
  Country: None (occurrence: None)
  Receive Date: 20120403
  Receipt Date: 20120326
  Transmission Date: 20120825
  Serious: No
  Sender: FDA-Public Use
  Company Number: US-B.I. PHARMACEUTICALS,INC./RIDGEFIELD-2012-BP-04389BP

PATIENT
  Sex: Female

DRUGS (1)
  1. COMBIVENT [Suspect]
     Indication: EMPHYSEMA
     Dosage: 3 PUF
     Route: 055
     Dates: start: 20120229

REACTIONS (2)
  - PRODUCT TASTE ABNORMAL [None]
  - MALAISE [None]
